FAERS Safety Report 18565328 (Version 1)
Quarter: 2020Q4

REPORT INFORMATION
  Report Type: Spontaneous
  Country: VN (occurrence: VN)
  Receive Date: 20201201
  Receipt Date: 20201201
  Transmission Date: 20210114
  Serious: Yes (Other)
  Sender: FDA-Public Use
  Company Number: VN-ASTRAZENECA-2020SF57406

PATIENT
  Age: 80 Year

DRUGS (1)
  1. GEFITINIB. [Suspect]
     Active Substance: GEFITINIB
     Route: 048

REACTIONS (6)
  - Rash [Recovering/Resolving]
  - Lymphadenopathy mediastinal [Unknown]
  - Lung neoplasm [Unknown]
  - Hepatic enzyme increased [Recovering/Resolving]
  - Metastases to bone [Unknown]
  - Pruritus [Recovering/Resolving]
